FAERS Safety Report 7161842 (Version 8)
Quarter: 2012Q4

REPORT INFORMATION
  Report Type: Report from Study
  Country: CN (occurrence: CN)
  Receive Date: 20091029
  Receipt Date: 20120928
  Transmission Date: 20130627
  Serious: Yes (Hospitalization, Other)
  Sender: FDA-Public Use
  Company Number: CN-JNJFOC-20091006328

PATIENT
  Age: 43 Year
  Sex: Male
  Weight: 66 kg

DRUGS (4)
  1. BLINDED; INFLIXIMAB, RECOMBINANT [Suspect]
     Indication: PSORIASIS
     Route: 042
     Dates: start: 20090922
  2. BLINDED; INFLIXIMAB, RECOMBINANT [Suspect]
     Indication: PSORIASIS
     Route: 042
     Dates: start: 20090421
  3. PLACEBO [Suspect]
     Indication: PSORIASIS
     Route: 042
     Dates: start: 20090922
  4. PLACEBO [Suspect]
     Indication: PSORIASIS
     Route: 042
     Dates: start: 20090421

REACTIONS (2)
  - Pulmonary tuberculosis [Not Recovered/Not Resolved]
  - Lymphadenitis [Not Recovered/Not Resolved]
